FAERS Safety Report 24013840 (Version 1)
Quarter: 2024Q2

REPORT INFORMATION
  Report Type: Spontaneous
  Country: US (occurrence: US)
  Receive Date: 20240626
  Receipt Date: 20240626
  Transmission Date: 20240716
  Serious: Yes (Other)
  Sender: FDA-Public Use
  Company Number: US-BRISTOL-MYERS SQUIBB COMPANY-2024-101515

PATIENT
  Age: 83 Year
  Sex: Male
  Weight: 111 kg

DRUGS (1)
  1. REVLIMID [Suspect]
     Active Substance: LENALIDOMIDE
     Indication: Plasma cell myeloma
     Dosage: FREQ : DAILY FOR 28 DAYS
     Route: 048
     Dates: start: 20200831, end: 2021

REACTIONS (2)
  - Drug intolerance [Unknown]
  - Pneumonia [Unknown]
